FAERS Safety Report 15020157 (Version 2)
Quarter: 2018Q3

REPORT INFORMATION
  Report Type: Spontaneous
  Country: CO (occurrence: CO)
  Receive Date: 20180618
  Receipt Date: 20180809
  Transmission Date: 20181010
  Serious: Yes (Other)
  Sender: FDA-Public Use
  Company Number: CO-009507513-1806COL005796

PATIENT
  Sex: Male

DRUGS (2)
  1. JANUMET [Suspect]
     Active Substance: METFORMIN HYDROCHLORIDE\SITAGLIPTIN PHOSPHATE
     Dosage: 1 TABLET (1 DF), AT MORNING
     Route: 048
     Dates: start: 2018
  2. JANUMET [Suspect]
     Active Substance: METFORMIN HYDROCHLORIDE\SITAGLIPTIN PHOSPHATE
     Dosage: 1 TABLET (1 DF), AT NIGHT
     Route: 048
     Dates: start: 2018

REACTIONS (5)
  - Supraventricular extrasystoles [Unknown]
  - Atrial fibrillation [Unknown]
  - Tachycardia [Unknown]
  - Ventricular extrasystoles [Recovering/Resolving]
  - Inappropriate schedule of drug administration [Unknown]

NARRATIVE: CASE EVENT DATE: 2018
